FAERS Safety Report 16565356 (Version 1)
Quarter: 2019Q3

REPORT INFORMATION
  Report Type: Spontaneous
  Country: ES (occurrence: ES)
  Receive Date: 20190712
  Receipt Date: 20190712
  Transmission Date: 20191004
  Serious: Yes (Hospitalization, Other)
  Sender: FDA-Public Use
  Company Number: ES-CPL-001098

PATIENT
  Age: 72 Year
  Sex: Female

DRUGS (3)
  1. HEPARIN [Concomitant]
     Active Substance: HEPARIN SODIUM
     Indication: DEEP VEIN THROMBOSIS
  2. METRONIDAZOLE. [Suspect]
     Active Substance: METRONIDAZOLE
     Indication: ENTEROCOCCAL INFECTION
     Route: 048
  3. METRONIDAZOLE. [Suspect]
     Active Substance: METRONIDAZOLE
     Indication: ENTEROCOCCAL INFECTION
     Route: 042

REACTIONS (2)
  - Encephalopathy [Recovering/Resolving]
  - Multiple organ dysfunction syndrome [Unknown]
